FAERS Safety Report 21085515 (Version 1)
Quarter: 2022Q3

REPORT INFORMATION
  Report Type: Report from Study
  Country: GB (occurrence: GB)
  Receive Date: 20220715
  Receipt Date: 20220715
  Transmission Date: 20221027
  Serious: Yes (Hospitalization, Other)
  Sender: FDA-Public Use
  Company Number: GB-ABBVIE-22K-167-4465614-00

PATIENT
  Age: 76 Year
  Sex: Male

DRUGS (8)
  1. CARBIDOPA\LEVODOPA [Suspect]
     Active Substance: CARBIDOPA\LEVODOPA
     Indication: Parkinson^s disease
     Dosage: MD 10.6, CR 4.8, ED 2.5
     Route: 050
  2. CARBIDOPA\LEVODOPA [Suspect]
     Active Substance: CARBIDOPA\LEVODOPA
  3. FLUDROCORTISONE [Suspect]
     Active Substance: FLUDROCORTISONE
     Indication: Blood pressure measurement
     Route: 065
  4. BENSERAZIDE HYDROCHLORIDE\LEVODOPA [Concomitant]
     Active Substance: BENSERAZIDE HYDROCHLORIDE\LEVODOPA
     Indication: Product used for unknown indication
     Dosage: 1X AT NIGHT
  5. AMANTADINE [Concomitant]
     Active Substance: AMANTADINE
     Indication: Product used for unknown indication
     Dosage: 1X MORNING
  6. BENSERAZIDE HYDROCHLORIDE\LEVODOPA [Concomitant]
     Active Substance: BENSERAZIDE HYDROCHLORIDE\LEVODOPA
     Indication: Product used for unknown indication
     Dosage: 12.5MGS/50MGS?3X IN THE MORNING
  7. BENSERAZIDE HYDROCHLORIDE\LEVODOPA [Concomitant]
     Active Substance: BENSERAZIDE HYDROCHLORIDE\LEVODOPA
     Indication: Product used for unknown indication
     Dosage: 50/12.5  2X AT 9AM?DISPERSIBLE CO-BENELDOPA
  8. MIRTAZAPINE [Concomitant]
     Active Substance: MIRTAZAPINE
     Indication: Product used for unknown indication
     Dosage: AT NIGHT

REACTIONS (14)
  - Cerebral haematoma [Recovered/Resolved]
  - Hospitalisation [Unknown]
  - Fall [Recovered/Resolved]
  - Head injury [Unknown]
  - Mobility decreased [Unknown]
  - Weight decreased [Unknown]
  - Hemiparesis [Recovering/Resolving]
  - Ankle deformity [Unknown]
  - Urinary incontinence [Unknown]
  - Dyskinesia [Unknown]
  - Hallucination [Unknown]
  - Dysphagia [Unknown]
  - Orthostatic hypotension [Unknown]
  - Walking aid user [Unknown]

NARRATIVE: CASE EVENT DATE: 20220101
